FAERS Safety Report 18275804 (Version 2)
Quarter: 2020Q4

REPORT INFORMATION
  Report Type: Spontaneous
  Country: PL (occurrence: PL)
  Receive Date: 20200917
  Receipt Date: 20201005
  Transmission Date: 20210113
  Serious: Yes (Other)
  Sender: FDA-Public Use
  Company Number: PL-TEVA-2020-PL-1828372

PATIENT
  Age: 31 Year
  Sex: Female
  Weight: 61 kg

DRUGS (2)
  1. EFFENTORA [Suspect]
     Active Substance: FENTANYL CITRATE
     Indication: BREAKTHROUGH PAIN
     Dosage: 800 MICROGRAM DAILY;
     Route: 002
  2. EFFENTORA [Suspect]
     Active Substance: FENTANYL CITRATE
     Route: 002

REACTIONS (5)
  - Product solubility abnormal [Unknown]
  - Product physical issue [Unknown]
  - Poor quality product administered [Unknown]
  - Product use in unapproved indication [Unknown]
  - Therapeutic product effect decreased [Unknown]

NARRATIVE: CASE EVENT DATE: 20200823
